FAERS Safety Report 10341159 (Version 1)
Quarter: 2014Q3

REPORT INFORMATION
  Report Type: Spontaneous
  Country: US (occurrence: US)
  Receive Date: 20140724
  Receipt Date: 20140724
  Transmission Date: 20150326
  Serious: No
  Sender: FDA-Public Use
  Company Number: US-009507513-1407USA007003

PATIENT
  Age: 71 Year
  Sex: Male
  Weight: 79.1 kg

DRUGS (3)
  1. VICTRELIS [Suspect]
     Active Substance: BOCEPREVIR
     Indication: HEPATITIS C
     Dosage: 800 MG, TID
     Dates: start: 20121201
  2. REBETOL [Suspect]
     Active Substance: RIBAVIRIN
     Dosage: 400MG QAM AND 200MG QPM
     Route: 048
  3. REBETOL [Suspect]
     Active Substance: RIBAVIRIN
     Indication: HEPATITIS C
     Dosage: 400MG QAM AND 600MG QPM
     Route: 048
     Dates: start: 20121103

REACTIONS (2)
  - Haemorrhage [Unknown]
  - Anaemia [Recovering/Resolving]

NARRATIVE: CASE EVENT DATE: 20121220
